FAERS Safety Report 22198932 (Version 6)
Quarter: 2023Q4

REPORT INFORMATION
  Report Type: Spontaneous
  Country: US (occurrence: US)
  Receive Date: 20230411
  Receipt Date: 20231228
  Transmission Date: 20240110
  Serious: Yes (Other)
  Sender: FDA-Public Use
  Company Number: US-BRISTOL-MYERS SQUIBB COMPANY-2023-048989

PATIENT
  Age: 70 Year
  Sex: Male

DRUGS (4)
  1. POMALYST [Suspect]
     Active Substance: POMALIDOMIDE
     Indication: Plasma cell myeloma
     Route: 048
     Dates: start: 202207
  2. POMALYST [Suspect]
     Active Substance: POMALIDOMIDE
     Route: 048
     Dates: start: 20220728
  3. POMALYST [Suspect]
     Active Substance: POMALIDOMIDE
     Route: 048
     Dates: start: 20230130
  4. POMALYST [Suspect]
     Active Substance: POMALIDOMIDE
     Dosage: FREQUENCY: ONCE DAILY FOR 21 DAYS ON AND 7 DAYS OFF
     Route: 048
     Dates: start: 202302

REACTIONS (10)
  - Brain fog [Unknown]
  - Thinking abnormal [Unknown]
  - Hypoaesthesia [Unknown]
  - Mental impairment [Unknown]
  - Nasal congestion [Unknown]
  - Ear congestion [Unknown]
  - Hypoaesthesia oral [Unknown]
  - Hypoaesthesia eye [Unknown]
  - Feeling abnormal [Unknown]
  - Confusional state [Unknown]
